FAERS Safety Report 7780940-6 (Version None)
Quarter: 2011Q3

REPORT INFORMATION
  Report Type: 
  Country: None (occurrence: None)
  Receive Date: 20110927
  Receipt Date: 20110919
  Transmission Date: 20111222
  Serious: No
  Sender: FDA-Public Use
  Company Number: US-PFIZER INC-2011222888

PATIENT
  Sex: Female
  Weight: 67.12 kg

DRUGS (4)
  1. ACETYLSALICYLIC ACID [Concomitant]
     Dosage: UNK
  2. PENICILLIN [Suspect]
     Dosage: UNK
  3. FEBUXOSTAT [Concomitant]
     Dosage: UNK
  4. MULTI-VITAMINS [Concomitant]
     Dosage: UNK

REACTIONS (1)
  - HYPERSENSITIVITY [None]
